FAERS Safety Report 7645303-2 (Version None)
Quarter: 2011Q3

REPORT INFORMATION
  Report Type: 
  Country: None (occurrence: None)
  Receive Date: 20110729
  Receipt Date: 20110714
  Transmission Date: 20111222
  Serious: Yes (Death)
  Sender: FDA-Public Use
  Company Number: NZ-WATSON-2011-11770

PATIENT

DRUGS (1)
  1. CABERGOLINE [Suspect]
     Indication: PRODUCT USED FOR UNKNOWN INDICATION

REACTIONS (4)
  - LEFT VENTRICULAR FAILURE [None]
  - INTESTINAL OBSTRUCTION [None]
  - MITRAL VALVE INCOMPETENCE [None]
  - CEREBRAL INFARCTION [None]
